FAERS Safety Report 16032841 (Version 1)
Quarter: 2019Q1

REPORT INFORMATION
  Report Type: Report from Study
  Country: IT (occurrence: IT)
  Receive Date: 20190305
  Receipt Date: 20190305
  Transmission Date: 20190418
  Serious: Yes (Other)
  Sender: FDA-Public Use
  Company Number: IT-ROCHE-2271351

PATIENT

DRUGS (2)
  1. CAPECITABINE. [Suspect]
     Active Substance: CAPECITABINE
     Indication: RECTAL CANCER
     Route: 065
  2. OXALIPLATIN. [Suspect]
     Active Substance: OXALIPLATIN
     Indication: RECTAL CANCER
     Dosage: 130 MG/MQ; ON DAYS 1, 19, AND 38
     Route: 065

REACTIONS (6)
  - Haematotoxicity [Unknown]
  - Neurotoxicity [Unknown]
  - Platelet toxicity [Unknown]
  - Toxicity to various agents [Unknown]
  - Gastrointestinal toxicity [Unknown]
  - Urinary bladder toxicity [Unknown]
